FAERS Safety Report 4344901-1 (Version None)
Quarter: 2004Q2

REPORT INFORMATION
  Report Type: 
  Country: None (occurrence: None)
  Receive Date: 20040423
  Receipt Date: 20031124
  Transmission Date: 20050107
  Serious: Yes (Other)
  Sender: FDA-Public Use
  Company Number: 200313024DE

PATIENT
  Age: 58 Year
  Sex: Female

DRUGS (4)
  1. KETEK [Suspect]
     Indication: BRONCHITIS
     Route: 048
     Dates: start: 20031021, end: 20031021
  2. KETEK [Suspect]
     Indication: INFLUENZA
     Route: 048
     Dates: start: 20031021, end: 20031021
  3. SULPIRID BETA 200 [Suspect]
     Indication: INFLUENZA
     Route: 048
     Dates: start: 20040401, end: 20031001
  4. GELOMYRTOL FORTE [Concomitant]
     Indication: BRONCHITIS
     Dates: start: 20031017, end: 20031021

REACTIONS (9)
  - AGEUSIA [None]
  - DRUG INTOLERANCE [None]
  - ECZEMA [None]
  - IMMUNE SYSTEM DISORDER [None]
  - PARAESTHESIA [None]
  - PRURITUS [None]
  - PRURITUS ANI [None]
  - RASH [None]
  - URTICARIA [None]
